FAERS Safety Report 8390643-5 (Version None)
Quarter: 2012Q2

REPORT INFORMATION
  Report Type: 
  Country: None (occurrence: None)
  Receive Date: 20120517
  Receipt Date: 20120507
  Transmission Date: 20120825
  Serious: No
  Sender: FDA-Public Use
  Company Number: B0801126A

PATIENT
  Sex: Male

DRUGS (6)
  1. RABBIT ANTITHYMOCYTE IMMU (FORMULATION UNKNOWN) (RABBIT ANTITHYMOCYTE [Suspect]
     Indication: HAEMATOLOGICAL MALIGNANCY
  2. VALACICLOVIR [Suspect]
     Indication: ANTIVIRAL PROPHYLAXIS
  3. FLUDARABINE PHOSPHATE [Suspect]
     Indication: HAEMATOLOGICAL MALIGNANCY
     Dosage: 160 MG/MG
  4. LEVOFLOXACIN [Suspect]
     Indication: ANTIBIOTIC PROPHYLAXIS
  5. MELPHALAN HYDROCHLORIDE [Suspect]
     Indication: HAEMATOLOGICAL MALIGNANCY
     Dosage: 140 MG/M2
  6. THIOTEPA [Suspect]
     Indication: HAEMATOLOGICAL MALIGNANCY
     Dosage: 10 MG/KG

REACTIONS (3)
  - NEPHROPATHY TOXIC [None]
  - RENAL FAILURE ACUTE [None]
  - DIALYSIS [None]
